FAERS Safety Report 10095836 (Version 2)
Quarter: 2014Q2

REPORT INFORMATION
  Report Type: Spontaneous
  Country: US (occurrence: US)
  Receive Date: 20140422
  Receipt Date: 20140422
  Transmission Date: 20141212
  Serious: No
  Sender: FDA-Public Use
  Company Number: US-GILEAD-2013-0075210

PATIENT
  Sex: Female

DRUGS (1)
  1. LETAIRIS [Suspect]
     Indication: PRODUCT USED FOR UNKNOWN INDICATION
     Dosage: 10 MG, QD
     Dates: start: 20090917

REACTIONS (5)
  - Chest discomfort [Recovering/Resolving]
  - Fall [Unknown]
  - Ankle fracture [Unknown]
  - Oedema [Recovering/Resolving]
  - Dyspnoea [Recovering/Resolving]
